FAERS Safety Report 26068423 (Version 1)
Quarter: 2025Q4

REPORT INFORMATION
  Report Type: Other
  Country: EU (occurrence: EU)
  Receive Date: 20251120
  Receipt Date: 20251120
  Transmission Date: 20260118
  Serious: Yes (Hospitalization, Other)
  Sender: STRIDES
  Company Number: EU-ACRAF-2025-039407

PATIENT
  Age: 14 Year
  Sex: Male

DRUGS (1)
  1. IBUPROFEN [Suspect]
     Active Substance: IBUPROFEN
     Indication: Arthralgia
     Dosage: UNK
     Route: 065

REACTIONS (4)
  - Anuria [Recovering/Resolving]
  - Tubulointerstitial nephritis [Recovering/Resolving]
  - Hypertension [Recovering/Resolving]
  - Acute kidney injury [Recovering/Resolving]
